FAERS Safety Report 5186876-1 (Version None)
Quarter: 2006Q4

REPORT INFORMATION
  Report Type: 
  Country: None (occurrence: None)
  Receive Date: 20061213
  Receipt Date: 20061204
  Transmission Date: 20070319
  Serious: Yes (Hospitalization, Other)
  Sender: FDA-Public Use
  Company Number: 2005132317

PATIENT
  Age: 37 Year
  Sex: Female
  Weight: 51.2 kg

DRUGS (3)
  1. NEURONTIN [Suspect]
     Indication: BACK PAIN
     Dosage: 100 MG, AS NECESSARY
     Dates: start: 20020101
  2. NEURONTIN [Suspect]
     Indication: MOVEMENT DISORDER
     Dosage: 100 MG, AS NECESSARY
     Dates: start: 20020101
  3. TRIAMCINOLONE [Concomitant]

REACTIONS (5)
  - ALCOHOL POISONING [None]
  - DEPRESSION [None]
  - DRUG INEFFECTIVE [None]
  - OVERDOSE [None]
  - SUICIDE ATTEMPT [None]
